FAERS Safety Report 15292935 (Version 1)
Quarter: 2018Q3

REPORT INFORMATION
  Report Type: Spontaneous
  Country: US (occurrence: US)
  Receive Date: 20180806
  Receipt Date: 20180806
  Transmission Date: 20181010
  Serious: Yes (Other)
  Sender: FDA-Public Use
  Company Number: None

PATIENT
  Age: 5 Year
  Sex: Female

DRUGS (3)
  1. MULTI VITAMIN WITH FISH OIL [Concomitant]
  2. LACTULOSE. [Concomitant]
     Active Substance: LACTULOSE
  3. MIRALAX [Suspect]
     Active Substance: POLYETHYLENE GLYCOL 3350
     Indication: CONSTIPATION

REACTIONS (6)
  - Drug administered to patient of inappropriate age [None]
  - Separation anxiety disorder [None]
  - Sensory disturbance [None]
  - Mood swings [None]
  - Prescribed overdose [None]
  - Attention deficit/hyperactivity disorder [None]

NARRATIVE: CASE EVENT DATE: 20130801
